FAERS Safety Report 6523509-3 (Version None)
Quarter: 2009Q4

REPORT INFORMATION
  Report Type: 
  Country: None (occurrence: None)
  Receive Date: 20091231
  Receipt Date: 20091221
  Transmission Date: 20100525
  Serious: Yes (Other)
  Sender: FDA-Public Use
  Company Number: PHEH2009US17237

PATIENT
  Sex: Male

DRUGS (15)
  1. RECLAST [Suspect]
     Dates: start: 20091112
  2. METOPROLOL TARTRATE [Concomitant]
  3. KEPPRA [Concomitant]
  4. DILANTIN                                /AUS/ [Concomitant]
  5. NEURONTIN [Concomitant]
  6. HYTRIN [Concomitant]
  7. ZANTAC [Concomitant]
  8. DAYPRO [Concomitant]
  9. PREDNISONE [Concomitant]
  10. KLONOPIN [Concomitant]
  11. AMBIEN [Concomitant]
  12. DARVON [Concomitant]
  13. PARAFON [Concomitant]
  14. VITAMINS NOS [Concomitant]
  15. CALCIUM [Concomitant]

REACTIONS (3)
  - CONVULSION [None]
  - DYSTONIA [None]
  - OEDEMA PERIPHERAL [None]
